FAERS Safety Report 7546398-7 (Version None)
Quarter: 2011Q2

REPORT INFORMATION
  Report Type: 
  Country: None (occurrence: None)
  Receive Date: 20110614
  Receipt Date: 20110610
  Transmission Date: 20111010
  Serious: Yes (Death)
  Sender: FDA-Public Use
  Company Number: PHHY2011AR51493

PATIENT
  Sex: Female

DRUGS (2)
  1. TRILEPTAL [Suspect]
     Indication: SENILE DEMENTIA
  2. TRILEPTAL [Suspect]
     Indication: PARKINSON'S DISEASE

REACTIONS (2)
  - SENILE DEMENTIA [None]
  - PARKINSON'S DISEASE [None]
